FAERS Safety Report 8444427-X (Version None)
Quarter: 2012Q2

REPORT INFORMATION
  Report Type: 
  Country: None (occurrence: None)
  Receive Date: 20120618
  Receipt Date: 20120605
  Transmission Date: 20120825
  Serious: Yes (Hospitalization)
  Sender: FDA-Public Use
  Company Number: US-VERTEX PHARMACEUTICALS INC.-AE-2012-008236

PATIENT
  Sex: Female
  Weight: 51 kg

DRUGS (17)
  1. ZENPEP [Concomitant]
  2. PREVACID [Concomitant]
  3. AQUADEK [Concomitant]
  4. BACTRIM [Concomitant]
  5. ATROVENT [Concomitant]
  6. VITAMIN K TAB [Concomitant]
  7. ADVAIR DISKUS 100/50 [Concomitant]
  8. MIRALAX [Concomitant]
  9. TOBRAMYCIN [Concomitant]
  10. KALYDECO [Suspect]
     Indication: CYSTIC FIBROSIS
     Dates: start: 20120226
  11. AZTREONAM [Concomitant]
  12. CALCIUM [Concomitant]
  13. PULMAZYME [Concomitant]
  14. VORICONAZOLE [Concomitant]
  15. AZITHROMYCIN [Concomitant]
  16. ALBUTEROL [Concomitant]
  17. BUSPAR [Concomitant]

REACTIONS (2)
  - BENIGN INTRACRANIAL HYPERTENSION [None]
  - INFECTIVE PULMONARY EXACERBATION OF CYSTIC FIBROSIS [None]
